FAERS Safety Report 7875005-9 (Version None)
Quarter: 2011Q4

REPORT INFORMATION
  Report Type: 
  Country: None (occurrence: None)
  Receive Date: 20111031
  Receipt Date: 20111025
  Transmission Date: 20120403
  Serious: Yes (Hospitalization, Other)
  Sender: FDA-Public Use
  Company Number: US-B.I. PHARMACEUTICALS,INC./RIDGEFIELD-2011-BP-24932BP

PATIENT
  Sex: Male

DRUGS (8)
  1. PRADAXA [Suspect]
     Indication: ATRIAL FIBRILLATION
     Dosage: 300 MG
     Route: 048
     Dates: start: 20110622, end: 20111018
  2. DIGOXIN [Concomitant]
     Indication: ATRIAL FIBRILLATION
     Dosage: 0.25 MG
     Route: 048
     Dates: start: 20090101
  3. LUNESTA [Concomitant]
     Indication: INSOMNIA
     Dosage: 3 MG
     Route: 048
     Dates: start: 20100101
  4. METOPROLOL [Concomitant]
     Indication: ATRIAL FIBRILLATION
     Dosage: 100 MG
     Route: 048
     Dates: start: 20090101
  5. FISH OIL [Concomitant]
     Indication: ROUTINE HEALTH MAINTENANCE
     Dosage: 1000 MG
     Route: 048
     Dates: start: 20090101
  6. TAMSULOSIN HCL [Concomitant]
     Indication: PROSTATIC DISORDER
     Dates: start: 20090101
  7. AVODART [Concomitant]
     Indication: PROSTATIC DISORDER
     Dosage: 0.4 MG
     Dates: start: 20080101
  8. VERAPAMIL [Concomitant]
     Indication: ATRIAL FIBRILLATION
     Route: 048
     Dates: start: 20060101

REACTIONS (5)
  - NAUSEA [None]
  - CEREBROVASCULAR ACCIDENT [None]
  - RETCHING [None]
  - PHOTOPHOBIA [None]
  - BALANCE DISORDER [None]
